FAERS Safety Report 17830939 (Version 1)
Quarter: 2020Q2

REPORT INFORMATION
  Report Type: Spontaneous
  Country: US (occurrence: US)
  Receive Date: 20200527
  Receipt Date: 20200527
  Transmission Date: 20200714
  Serious: No
  Sender: FDA-Public Use
  Company Number: US-THERAPEUTICSMD-2020TMD00908

PATIENT
  Age: 20 Year
  Sex: Female
  Weight: 106.12 kg

DRUGS (1)
  1. ANNOVERA [Suspect]
     Active Substance: ETHINYL ESTRADIOL\SEGESTERONE ACETATE
     Indication: ILL-DEFINED DISORDER
     Dosage: 0.013-0.15 MG/24HR, ONCE, TAKING OUT PRODUCT EVERY 3 WEEKS FOR PERIOD
     Route: 067
     Dates: start: 20191108, end: 20200204

REACTIONS (2)
  - Rash [Recovered/Resolved]
  - Metrorrhagia [Recovered/Resolved]

NARRATIVE: CASE EVENT DATE: 20191130
